FAERS Safety Report 25132685 (Version 1)
Quarter: 2025Q1

REPORT INFORMATION
  Report Type: Spontaneous
  Country: US (occurrence: US)
  Receive Date: 20250328
  Receipt Date: 20250328
  Transmission Date: 20250409
  Serious: No
  Sender: Kenvue
  Company Number: US-KENVUE-20250300604

PATIENT

DRUGS (2)
  1. ROGAINE [Suspect]
     Active Substance: MINOXIDIL
     Indication: Product used for unknown indication
     Route: 061
  2. MENS ROGAINE THICKENING 2 IN 1 SHAMPOO AND CONDITIONER [Concomitant]
     Indication: Product used for unknown indication
     Route: 061

REACTIONS (2)
  - Application site irritation [Unknown]
  - Application site pruritus [Unknown]
